FAERS Safety Report 23853463 (Version 1)
Quarter: 2024Q2

REPORT INFORMATION
  Report Type: Spontaneous
  Country: FR (occurrence: FR)
  Receive Date: 20240514
  Receipt Date: 20240514
  Transmission Date: 20240716
  Serious: Yes (Hospitalization)
  Sender: FDA-Public Use
  Company Number: FR-AFSSAPS-RN2024000149

PATIENT
  Age: 34 Year
  Sex: Male

DRUGS (2)
  1. MEROPENEM [Suspect]
     Active Substance: MEROPENEM
     Indication: Superinfection
     Dosage: UNK
     Route: 040
     Dates: start: 20240115, end: 20240128
  2. TEICOPLANIN [Suspect]
     Active Substance: TEICOPLANIN
     Indication: Superinfection
     Dosage: UNK
     Route: 040
     Dates: start: 20240122, end: 20240128

REACTIONS (1)
  - Toxic skin eruption [Recovered/Resolved]

NARRATIVE: CASE EVENT DATE: 20240128
